FAERS Safety Report 5153551-9 (Version None)
Quarter: 2006Q4

REPORT INFORMATION
  Report Type: 
  Country: None (occurrence: None)
  Receive Date: 20061113
  Receipt Date: 20061031
  Transmission Date: 20070319
  Serious: Yes (Death)
  Sender: FDA-Public Use
  Company Number: 033-20

PATIENT
  Age: 63 Year
  Sex: Male

DRUGS (8)
  1. TEVETEN HCT [Suspect]
     Indication: HYPERTENSION
     Dates: start: 20060508, end: 20060619
  2. ISONITE [Concomitant]
  3. TANAMIN [Concomitant]
  4. TOLTERODINE TARTRATE [Concomitant]
  5. THEOLAN-B ) (THEOPHYLLINE) [Concomitant]
  6. PHENYTOIN [Concomitant]
  7. DICHLOZID (HYDROCHLOROTHIAZIDE) [Concomitant]
  8. TEROSE [Concomitant]

REACTIONS (4)
  - ACUTE MYOCARDIAL INFARCTION [None]
  - CARDIAC FAILURE [None]
  - DYSPNOEA [None]
  - HYPOTENSION [None]
